FAERS Safety Report 23763680 (Version 3)
Quarter: 2024Q3

REPORT INFORMATION
  Report Type: Report from Study
  Country: DE (occurrence: DE)
  Receive Date: 20240419
  Receipt Date: 20240813
  Transmission Date: 20241016
  Serious: Yes (Life-Threatening, Hospitalization)
  Sender: EISAI
  Company Number: DE-Eisai Medical Research-EC-2023-135923

PATIENT
  Age: 64 Year
  Sex: Male
  Weight: 67.5 kg

DRUGS (10)
  1. LENVATINIB [Suspect]
     Active Substance: LENVATINIB
     Indication: Hepatocellular carcinoma
     Dosage: DOSE AND FREQUENCY UNKNOWN
     Route: 048
     Dates: start: 20230113, end: 20230622
  2. PEMBROLIZUMAB [Suspect]
     Active Substance: PEMBROLIZUMAB
     Indication: Hepatocellular carcinoma
     Dosage: DOSE AND FREQUENCY UNKNOWN
     Route: 041
     Dates: start: 20230113, end: 20230721
  3. ACTRAPID [Concomitant]
     Active Substance: INSULIN HUMAN
  4. INNOHEP [Concomitant]
     Active Substance: TINZAPARIN SODIUM
  5. SUCRALFATE [Concomitant]
     Active Substance: SUCRALFATE
  6. TORSEMIDE [Concomitant]
     Active Substance: TORSEMIDE
  7. CARVEDILOL [Concomitant]
     Active Substance: CARVEDILOL
  8. PANTOPRAZOLE [Concomitant]
     Active Substance: PANTOPRAZOLE
  9. SPIRONOLACTONE [Concomitant]
     Active Substance: SPIRONOLACTONE
  10. LANTUS [Concomitant]
     Active Substance: INSULIN GLARGINE

REACTIONS (3)
  - Oesophageal varices haemorrhage [Recovered/Resolved]
  - Abdominal pain [Recovered/Resolved]
  - Ascites [Recovered/Resolved]

NARRATIVE: CASE EVENT DATE: 20230304
